FAERS Safety Report 9658737 (Version 2)
Quarter: 2013Q4

REPORT INFORMATION
  Report Type: Spontaneous
  Country: IT (occurrence: IT)
  Receive Date: 20131030
  Receipt Date: 20131108
  Transmission Date: 20140711
  Serious: Yes (Life-Threatening)
  Sender: FDA-Public Use
  Company Number: IT-ROCHE-1296136

PATIENT
  Age: 75 Year
  Sex: Female
  Weight: 51 kg

DRUGS (1)
  1. TORADOL [Suspect]
     Indication: RENAL COLIC
     Route: 042
     Dates: start: 20130810, end: 20130810

REACTIONS (1)
  - Cardio-respiratory arrest [Recovered/Resolved]
